FAERS Safety Report 21901920 (Version 2)
Quarter: 2023Q1

REPORT INFORMATION
  Report Type: Spontaneous
  Country: US (occurrence: US)
  Receive Date: 20230124
  Receipt Date: 20230221
  Transmission Date: 20230418
  Serious: Yes (Hospitalization, Other)
  Sender: FDA-Public Use
  Company Number: US-SA-SAC20230117001079

PATIENT
  Sex: Male

DRUGS (5)
  1. IPILIMUMAB [Suspect]
     Active Substance: IPILIMUMAB
     Indication: Product used for unknown indication
     Dosage: UNK
     Route: 065
     Dates: start: 20210224
  2. PLAVIX [Suspect]
     Active Substance: CLOPIDOGREL BISULFATE
     Indication: Bladder cancer
     Dosage: UNK
     Route: 065
     Dates: start: 20210623
  3. NIVOLUMAB [Suspect]
     Active Substance: NIVOLUMAB
     Indication: Product used for unknown indication
     Dosage: 480 MG
     Dates: start: 20210224, end: 20210714
  4. CABOZANTINIB [Concomitant]
     Active Substance: CABOZANTINIB
     Dosage: 300 MG
     Dates: start: 20210224, end: 20210714
  5. LASIX [Concomitant]
     Active Substance: FUROSEMIDE

REACTIONS (10)
  - Haematuria [Recovered/Resolved with Sequelae]
  - Urinary bladder haemorrhage [Recovered/Resolved with Sequelae]
  - Haematuria [Not Recovered/Not Resolved]
  - Urinary retention [Not Recovered/Not Resolved]
  - Abdominal pain upper [Recovered/Resolved with Sequelae]
  - Chromaturia [Not Recovered/Not Resolved]
  - Urinary incontinence [Recovered/Resolved with Sequelae]
  - Abdominal distension [Recovered/Resolved with Sequelae]
  - Abdominal pain lower [Recovered/Resolved with Sequelae]
  - Groin pain [Recovered/Resolved with Sequelae]

NARRATIVE: CASE EVENT DATE: 20210704
